FAERS Safety Report 5403497-3 (Version None)
Quarter: 2007Q3

REPORT INFORMATION
  Report Type: 
  Country: None (occurrence: None)
  Receive Date: 20070713
  Receipt Date: 20070215
  Transmission Date: 20080115
  Serious: Yes (Hospitalization)
  Sender: FDA-Public Use
  Company Number: US-JNJFOC-20060601738

PATIENT
  Age: 30 Year
  Sex: Female
  Weight: 50.5 kg

DRUGS (4)
  1. ORTHO EVRA [Suspect]
     Indication: CONTRACEPTION
     Dosage: 1 DOSE(S), 3 IN 4 WEEK, TRANSDERMAL, 3 WEEKS ON, 3 DAYS OFF
     Route: 062
     Dates: start: 20040813, end: 20040828
  2. ORTHO EVRA [Suspect]
     Indication: OVARIAN CYST
     Dosage: 1 DOSE(S), 3 IN 4 WEEK, TRANSDERMAL, 3 WEEKS ON, 3 DAYS OFF
     Route: 062
     Dates: start: 20040813, end: 20040828
  3. ORTHO EVRA [Suspect]
     Indication: CONTRACEPTION
     Dosage: 1 DOSE(S), 3 IN 4 WEEK, TRANSDERMAL, 3 WEEKS ON, 3 DAYS OFF
     Route: 062
     Dates: start: 20040828, end: 20050208
  4. ORTHO EVRA [Suspect]
     Indication: OVARIAN CYST
     Dosage: 1 DOSE(S), 3 IN 4 WEEK, TRANSDERMAL, 3 WEEKS ON, 3 DAYS OFF
     Route: 062
     Dates: start: 20040828, end: 20050208

REACTIONS (2)
  - DEEP VEIN THROMBOSIS [None]
  - PULMONARY EMBOLISM [None]
